FAERS Safety Report 5869070-8 (Version None)
Quarter: 2008Q3

REPORT INFORMATION
  Report Type: 
  Country: None (occurrence: None)
  Receive Date: 20080903
  Receipt Date: 20080829
  Transmission Date: 20090109
  Serious: Yes (Hospitalization)
  Sender: FDA-Public Use
  Company Number: B0534985A

PATIENT
  Age: 85 Year
  Sex: Female

DRUGS (13)
  1. DEROXAT [Suspect]
     Indication: GENERAL PHYSICAL HEALTH DETERIORATION
     Dosage: 10MG PER DAY
     Route: 048
     Dates: start: 20080418, end: 20080423
  2. COAPROVEL [Suspect]
     Indication: DRUG USE FOR UNKNOWN INDICATION
     Dosage: 300MG PER DAY
     Route: 048
     Dates: end: 20080423
  3. VASTAREL [Concomitant]
     Dosage: 35MG TWICE PER DAY
     Route: 065
  4. STILNOX [Concomitant]
     Dosage: .5UNIT PER DAY
     Route: 065
  5. LEXOMIL [Concomitant]
     Dosage: .25UNIT TWICE PER DAY
     Route: 065
  6. FOSAVANCE [Concomitant]
     Dosage: 1UNIT WEEKLY
     Route: 065
  7. ASPIRIN [Concomitant]
     Dosage: 75MG PER DAY
     Route: 065
  8. TARDYFERON [Concomitant]
     Dosage: 2UNIT PER DAY
     Route: 065
  9. MOTILIUM [Concomitant]
     Route: 065
  10. LOVENOX [Concomitant]
     Dosage: .4ML PER DAY
     Route: 065
  11. NITROGLYCERIN [Concomitant]
     Route: 065
  12. DOLIPRANE [Concomitant]
     Route: 065
  13. FURADANTIN [Concomitant]
     Route: 065

REACTIONS (5)
  - DISORIENTATION [None]
  - HYPONATRAEMIA [None]
  - INAPPROPRIATE ANTIDIURETIC HORMONE SECRETION [None]
  - STUPOR [None]
  - URINE SODIUM INCREASED [None]
